FAERS Safety Report 9705929 (Version 2)
Quarter: 2014Q1

REPORT INFORMATION
  Report Type: Report from Study
  Country: DE (occurrence: DE)
  Receive Date: 20131122
  Receipt Date: 20140203
  Transmission Date: 20141002
  Serious: Yes (Hospitalization)
  Sender: FDA-Public Use
  Company Number: DE-ABBVIE-13P-062-1170066-00

PATIENT
  Age: 57 Year
  Sex: Female
  Weight: 80 kg

DRUGS (4)
  1. HUMIRA [Suspect]
     Indication: RHEUMATOID ARTHRITIS
     Route: 058
     Dates: start: 20101208, end: 20131031
  2. METHOTREXATE [Concomitant]
     Indication: RHEUMATOID ARTHRITIS
  3. PREDNISOLONE [Concomitant]
     Indication: RHEUMATOID ARTHRITIS
  4. THYRONAJOD [Concomitant]
     Indication: HYPOTHYROIDISM

REACTIONS (3)
  - Foot deformity [Not Recovered/Not Resolved]
  - Fistula [Not Recovered/Not Resolved]
  - Skin infection [Unknown]
